FAERS Safety Report 8968156 (Version 3)
Quarter: 2013Q1

REPORT INFORMATION
  Report Type: Spontaneous
  Country: US (occurrence: US)
  Receive Date: 20121217
  Receipt Date: 20130123
  Transmission Date: 20140127
  Serious: Yes (Other)
  Sender: FDA-Public Use
  Company Number: US-PFIZER INC-2012318521

PATIENT
  Age: 50 Year
  Sex: Female
  Weight: 69.84 kg

DRUGS (7)
  1. LYRICA [Suspect]
     Indication: MIGRAINE
     Dosage: 50 MG, 2X/DAY
     Dates: start: 2012
  2. TYLENOL [Concomitant]
     Indication: MIGRAINE
     Dosage: 500 MG, 1X/DAY (PRN FOUR A DAY)
  3. IBUPROFEN [Concomitant]
     Indication: MIGRAINE
     Dosage: 1600 MG, 1X/DAY
  4. IBUPROFEN [Concomitant]
     Dosage: 800, 3X/DAYS
  5. IBUPROFEN [Concomitant]
     Dosage: 800 MG, 2X/DAY (TAKE 800 MG BY MOUTH 2 (TWO) TIMES DAILY))
     Route: 048
  6. SHARK CARTILAGE [Concomitant]
     Dosage: UNK, 1X/DAY (TAKE 1 TAB BY MOUTH ONCE DAILY)
     Route: 048
  7. BENADRYL [Concomitant]
     Dosage: ONCE DAILY
     Route: 048

REACTIONS (17)
  - Vaginal haemorrhage [Not Recovered/Not Resolved]
  - Panic attack [Not Recovered/Not Resolved]
  - Ulcer [Unknown]
  - Helicobacter test positive [Unknown]
  - Dyspnoea [Not Recovered/Not Resolved]
  - Migraine [Unknown]
  - Vision blurred [Not Recovered/Not Resolved]
  - Dyspepsia [Not Recovered/Not Resolved]
  - Oedema peripheral [Not Recovered/Not Resolved]
  - Agitation [Not Recovered/Not Resolved]
  - Weight increased [Not Recovered/Not Resolved]
  - Asthenia [Not Recovered/Not Resolved]
  - Nightmare [Unknown]
  - Confusional state [Unknown]
  - Anger [Unknown]
  - Drug intolerance [Unknown]
  - Off label use [Unknown]
